FAERS Safety Report 6518276-3 (Version None)
Quarter: 2009Q4

REPORT INFORMATION
  Report Type: 
  Country: None (occurrence: None)
  Receive Date: 20091224
  Receipt Date: 20091221
  Transmission Date: 20100525
  Serious: Yes (Other)
  Sender: FDA-Public Use
  Company Number: GB-GILEAD-2009-0026167

PATIENT
  Sex: Female

DRUGS (4)
  1. TRUVADA [Suspect]
     Indication: HIV INFECTION
  2. EFAVIRENZ [Suspect]
     Indication: HIV INFECTION
  3. IMPLANON [Suspect]
     Indication: CONTRACEPTION
     Dates: start: 20040811, end: 20070716
  4. IMPLANON [Suspect]
     Route: 058
     Dates: start: 20070716, end: 20080624

REACTIONS (1)
  - PREGNANCY WITH IMPLANT CONTRACEPTIVE [None]
